FAERS Safety Report 10244969 (Version 2)
Quarter: 2014Q3

REPORT INFORMATION
  Report Type: Spontaneous
  Country: US (occurrence: US)
  Receive Date: 20140618
  Receipt Date: 20140912
  Transmission Date: 20150326
  Serious: No
  Sender: FDA-Public Use
  Company Number: US-GALDERMA-US14001969

PATIENT
  Age: 36 Year
  Sex: Female

DRUGS (13)
  1. METRONIDAZOLE TOPICAL GEL, 0.75% BY TARO [Concomitant]
     Indication: ROSACEA
     Dosage: 0.75%
     Route: 061
     Dates: start: 2009
  2. LAMICTAL [Concomitant]
     Active Substance: LAMOTRIGINE
     Indication: DEPRESSED MOOD
  3. MIRVASO [Suspect]
     Active Substance: BRIMONIDINE TARTRATE
     Indication: ROSACEA
     Dosage: 0.33%
     Route: 061
     Dates: start: 20140516, end: 20140516
  4. CETAPHIL [Concomitant]
     Active Substance: AVOBENZONE\OCTOCRYLENE\TRICLOSAN
     Indication: THERAPEUTIC SKIN CARE TOPICAL
     Route: 061
     Dates: start: 2009
  5. NORTREL [Concomitant]
     Active Substance: ETHINYL ESTRADIOL\NORETHINDRONE
     Indication: CONTRACEPTION
     Dosage: 1/35
     Route: 048
     Dates: start: 2009
  6. PREVACID [Concomitant]
     Active Substance: LANSOPRAZOLE
     Indication: GASTROOESOPHAGEAL REFLUX DISEASE
     Route: 048
     Dates: start: 2008
  7. SULFACETAMIDE SODIUM SUSPENSION [Concomitant]
     Indication: SKIN EXFOLIATION
     Route: 061
     Dates: start: 2011
  8. SULFACETAMIDE SODIUM SUSPENSION [Concomitant]
     Indication: ROSACEA
  9. TWINLAB [Concomitant]
     Indication: VITAMIN SUPPLEMENTATION
     Route: 048
  10. CETAPHIL DAILY FACIAL MOISTURIZER WITH SUNSCREEN SPF50+ [Concomitant]
     Indication: DRY SKIN PROPHYLAXIS
     Route: 061
     Dates: start: 201404, end: 201405
  11. CETAPHIL DAILY FACIAL MOISTURIZER WITH SUNSCREEN SPF50+ [Concomitant]
     Indication: PROPHYLAXIS AGAINST SOLAR RADIATION
     Route: 061
     Dates: start: 201404, end: 201405
  12. LAMICTAL [Concomitant]
     Active Substance: LAMOTRIGINE
     Indication: DEPRESSION
     Dosage: 100 MG
     Route: 048
     Dates: start: 2008
  13. UNITHROID [Concomitant]
     Active Substance: LEVOTHYROXINE SODIUM
     Indication: THYROID DISORDER
     Dosage: 150 MCG
     Route: 048
     Dates: start: 2007

REACTIONS (7)
  - Feeling hot [Recovered/Resolved]
  - Rebound effect [Recovered/Resolved]
  - Condition aggravated [Recovered/Resolved]
  - Flushing [Not Recovered/Not Resolved]
  - Rash [Unknown]
  - Pallor [Recovered/Resolved]
  - Erythema [Recovered/Resolved]

NARRATIVE: CASE EVENT DATE: 201404
